FAERS Safety Report 8250461-5 (Version None)
Quarter: 2012Q2

REPORT INFORMATION
  Report Type: 
  Country: None (occurrence: None)
  Receive Date: 20120402
  Receipt Date: 20120402
  Transmission Date: 20120825
  Serious: Yes (Hospitalization, Other)
  Sender: FDA-Public Use
  Company Number: None

PATIENT
  Age: 78 Year
  Sex: Female
  Weight: 101 kg

DRUGS (1)
  1. DIGOXIN [Suspect]
     Indication: ATRIAL FIBRILLATION
     Dosage: 0.25MG
     Route: 048

REACTIONS (6)
  - RENAL IMPAIRMENT [None]
  - TOXICITY TO VARIOUS AGENTS [None]
  - NAUSEA [None]
  - ABDOMINAL DISCOMFORT [None]
  - HALO VISION [None]
  - VISUAL IMPAIRMENT [None]
